FAERS Safety Report 8088986-8 (Version None)
Quarter: 2012Q1

REPORT INFORMATION
  Report Type: 
  Country: None (occurrence: None)
  Receive Date: 20120128
  Receipt Date: 20110831
  Transmission Date: 20120608
  Serious: No
  Sender: FDA-Public Use
  Company Number: US-ABBOTT-11P-163-0837209-00

PATIENT
  Sex: Male
  Weight: 97.61 kg

DRUGS (8)
  1. EDECRIN [Concomitant]
     Indication: DIURETIC THERAPY
  2. HUMIRA [Suspect]
     Indication: RHEUMATOID ARTHRITIS
     Dates: start: 20080101
  3. LOSARTAN POTASSIUM [Concomitant]
     Indication: HYPERTENSION
  4. FOLIC ACID [Concomitant]
     Indication: VITAMIN SUPPLEMENTATION
  5. METHOTREXATE [Concomitant]
     Indication: RHEUMATOID ARTHRITIS
  6. LIPITOR [Concomitant]
     Indication: HYPERLIPIDAEMIA
  7. ALLOPURINOL [Concomitant]
     Indication: GOUT
  8. NORVASC [Suspect]
     Indication: HYPERTENSION
     Dates: start: 20080101, end: 20110706

REACTIONS (1)
  - OEDEMA [None]
